FAERS Safety Report 5474845-3 (Version None)
Quarter: 2007Q3

REPORT INFORMATION
  Report Type: 
  Country: None (occurrence: None)
  Receive Date: 20070928
  Receipt Date: 20070913
  Transmission Date: 20080115
  Serious: Yes (Hospitalization)
  Sender: FDA-Public Use
  Company Number: 013184

PATIENT
  Age: 52 Year
  Sex: Female

DRUGS (2)
  1. PRIALT [Suspect]
     Indication: PAIN
     Dosage: 0.21 UG, ONCE/HOUR, INTRATHECAL
     Route: 037
     Dates: start: 20070827
  2. DOMPERIDONE (DOMPERIDONE) [Concomitant]

REACTIONS (1)
  - LIVER FUNCTION TEST ABNORMAL [None]
